FAERS Safety Report 4743513-5 (Version None)
Quarter: 2005Q3

REPORT INFORMATION
  Report Type: 
  Country: None (occurrence: None)
  Receive Date: 20050809
  Receipt Date: 20050727
  Transmission Date: 20060218
  Serious: Yes (Other)
  Sender: FDA-Public Use
  Company Number: 2005109095

PATIENT
  Age: 32 Year
  Sex: Female
  Weight: 62 kg

DRUGS (4)
  1. SYNAREL SPRAY (NAFARELIN ACETATE) [Suspect]
     Indication: ILL-DEFINED DISORDER
     Dosage: NASAL
     Route: 045
     Dates: start: 20050705, end: 20050708
  2. ACETAMINOPHEN [Concomitant]
  3. IBUPROFEN [Concomitant]
  4. NORETHISTERONE(NORETHISTERONE) [Concomitant]

REACTIONS (3)
  - DYSPHAGIA [None]
  - MUSCLE TIGHTNESS [None]
  - PHARYNGEAL OEDEMA [None]
